FAERS Safety Report 4620503-4 (Version None)
Quarter: 2005Q1

REPORT INFORMATION
  Report Type: 
  Country: None (occurrence: None)
  Receive Date: 20050324
  Receipt Date: 20050311
  Transmission Date: 20050727
  Serious: Yes (Other)
  Sender: FDA-Public Use
  Company Number: 200511040BCC

PATIENT
  Age: 50 Year
  Sex: Male
  Weight: 90.7194 kg

DRUGS (5)
  1. ALEVE [Suspect]
     Indication: PAIN
     Dosage: 880 MG, TOTAL DAILY, ORAL
     Route: 048
     Dates: start: 20050309
  2. ALEVE [Suspect]
     Indication: ROAD TRAFFIC ACCIDENT
     Dosage: 880 MG, TOTAL DAILY, ORAL
     Route: 048
     Dates: start: 20050309
  3. ULTRACET [Concomitant]
  4. BENICAR [Concomitant]
  5. LIPITOR [Concomitant]

REACTIONS (1)
  - BLOOD PRESSURE INCREASED [None]
